FAERS Safety Report 18759458 (Version 2)
Quarter: 2021Q1

REPORT INFORMATION
  Report Type: Spontaneous
  Country: US (occurrence: US)
  Receive Date: 20210120
  Receipt Date: 20210201
  Transmission Date: 20210419
  Serious: Yes (Death, Other)
  Sender: FDA-Public Use
  Company Number: US-SA-2021SA015546

PATIENT
  Sex: Male

DRUGS (1)
  1. ZANTAC [Suspect]
     Active Substance: RANITIDINE HYDROCHLORIDE
     Indication: GASTROOESOPHAGEAL REFLUX DISEASE
     Dosage: UNK
     Dates: start: 20170424, end: 20191201

REACTIONS (5)
  - Pain [Unknown]
  - Injury [Unknown]
  - Anxiety [Unknown]
  - Pancreatic carcinoma metastatic [Fatal]
  - Emotional distress [Unknown]

NARRATIVE: CASE EVENT DATE: 20200113
